FAERS Safety Report 9134868 (Version 2)
Quarter: 2013Q1

REPORT INFORMATION
  Report Type: Spontaneous
  Country: IT (occurrence: IT)
  Receive Date: 20130304
  Receipt Date: 20130318
  Transmission Date: 20140127
  Serious: Yes (Other)
  Sender: FDA-Public Use
  Company Number: IT-PFIZER INC-2013072805

PATIENT
  Age: 63 Year
  Sex: Male

DRUGS (5)
  1. SUNITINIB MALATE [Suspect]
     Indication: RENAL CANCER
     Dosage: 50 MG, DAILY, 4 WK ON/ 2 WK OFF
     Route: 048
     Dates: start: 200809, end: 200910
  2. SUNITINIB MALATE [Suspect]
     Dosage: 37.5 MG, DAILY, 4 WK ON/ 2 WK OFF
     Route: 048
     Dates: start: 200910, end: 201008
  3. SUNITINIB MALATE [Suspect]
     Dosage: 50 MG, DAILY, 2 WK ON/ 1 WK OFF
     Route: 048
     Dates: start: 201008, end: 201102
  4. SUNITINIB MALATE [Suspect]
     Dosage: 37.5 MG, DAILY, 4 WK ON/ 2 WK OFF
     Route: 048
     Dates: start: 201102
  5. ZOLEDRONIC ACID [Concomitant]
     Indication: METASTASES TO BONE
     Dosage: 4 MG, EVERY 4 WEEKS
     Dates: start: 200809

REACTIONS (11)
  - Hemiparesis [Recovered/Resolved]
  - Hypertensive crisis [Recovering/Resolving]
  - Palmar-plantar erythrodysaesthesia syndrome [Recovered/Resolved]
  - Skin discolouration [Recovered/Resolved]
  - Fatigue [Recovered/Resolved]
  - Rash [Recovering/Resolving]
  - Disease progression [Recovering/Resolving]
  - Renal cancer [Recovering/Resolving]
  - Expressive language disorder [Recovered/Resolved]
  - Memory impairment [Recovered/Resolved]
  - Psychomotor skills impaired [Recovered/Resolved]
